FAERS Safety Report 24849819 (Version 1)
Quarter: 2025Q1

REPORT INFORMATION
  Report Type: Spontaneous
  Country: CA (occurrence: CA)
  Receive Date: 20250116
  Receipt Date: 20250116
  Transmission Date: 20250408
  Serious: Yes (Hospitalization, Disabling, Other)
  Sender: PFIZER
  Company Number: CA-PFIZER INC-202500009757

PATIENT
  Age: 53 Year
  Sex: Male
  Weight: 94 kg

DRUGS (13)
  1. VFEND [Suspect]
     Active Substance: VORICONAZOLE
     Indication: Sinusitis
     Dosage: 450 MG, 2X/DAY
     Route: 048
  2. VFEND [Suspect]
     Active Substance: VORICONAZOLE
     Indication: Infective aneurysm
  3. VFEND [Suspect]
     Active Substance: VORICONAZOLE
     Indication: Bone erosion
  4. MYCOPHENOLATE MOFETIL [Concomitant]
     Active Substance: MYCOPHENOLATE MOFETIL
  5. COREG [Concomitant]
     Active Substance: CARVEDILOL
  6. PERINDOPRIL ERBUMINE [Concomitant]
     Active Substance: PERINDOPRIL ERBUMINE
  7. DELTASONE [Concomitant]
     Active Substance: PREDNISONE
  8. DILAUDID [Concomitant]
     Active Substance: HYDROMORPHONE HYDROCHLORIDE
  9. FLEXERIL [Concomitant]
     Active Substance: CYCLOBENZAPRINE HYDROCHLORIDE
  10. RABEPRAZOLE SODIUM [Concomitant]
     Active Substance: RABEPRAZOLE SODIUM
  11. TACROLIMUS [Concomitant]
     Active Substance: TACROLIMUS
  12. PREGABALIN [Concomitant]
     Active Substance: PREGABALIN
  13. TRESIBA [Concomitant]
     Active Substance: INSULIN DEGLUDEC

REACTIONS (6)
  - Asthenia [Recovering/Resolving]
  - Axonal neuropathy [Recovering/Resolving]
  - Decubitus ulcer [Recovering/Resolving]
  - Movement disorder [Recovering/Resolving]
  - Muscle atrophy [Recovering/Resolving]
  - Off label use [Unknown]
